FAERS Safety Report 8583776-1 (Version None)
Quarter: 2012Q3

REPORT INFORMATION
  Report Type: 
  Country: None (occurrence: None)
  Receive Date: 20120810
  Receipt Date: 20120727
  Transmission Date: 20120928
  Serious: Yes (Disabling, Other)
  Sender: FDA-Public Use
  Company Number: US-009507513-1203USA03476

PATIENT

DRUGS (2)
  1. FOSAMAX [Suspect]
     Indication: OSTEOPENIA
     Dosage: UNK
     Route: 048
  2. FOSAMAX PLUS D [Suspect]
     Indication: OSTEOPENIA
     Route: 048

REACTIONS (18)
  - STRESS FRACTURE [None]
  - OSTEOPOROSIS [None]
  - TOOTH FRACTURE [None]
  - ADVERSE EVENT [None]
  - HIP FRACTURE [None]
  - LOW TURNOVER OSTEOPATHY [None]
  - BLOOD CHOLESTEROL INCREASED [None]
  - CALCIUM DEFICIENCY [None]
  - FEMUR FRACTURE [None]
  - ANXIETY [None]
  - BONE PAIN [None]
  - BIPOLAR II DISORDER [None]
  - TENDONITIS [None]
  - DEPRESSION [None]
  - VITAMIN D DEFICIENCY [None]
  - DECREASED INTEREST [None]
  - TIBIA FRACTURE [None]
  - ASTHMA [None]
